FAERS Safety Report 7343270-2 (Version None)
Quarter: 2011Q1

REPORT INFORMATION
  Report Type: 
  Country: None (occurrence: None)
  Receive Date: 20110310
  Receipt Date: 20110304
  Transmission Date: 20110831
  Serious: Yes (Hospitalization)
  Sender: FDA-Public Use
  Company Number: BR-JNJFOC-20110300454

PATIENT
  Sex: Female

DRUGS (6)
  1. TYLEX [Suspect]
     Indication: ILL-DEFINED DISORDER
     Route: 065
  2. OMEPRAZOLE [Concomitant]
  3. PACO (ACETAMINOPHEN AND CODEINE) [Concomitant]
  4. IBUPROFENO [Concomitant]
  5. LYRICA [Suspect]
     Indication: TENDON DISORDER
     Route: 065
  6. ATACAND [Concomitant]

REACTIONS (11)
  - PAIN IN EXTREMITY [None]
  - HYPERHIDROSIS [None]
  - CONSTIPATION [None]
  - CHEST PAIN [None]
  - MYOCARDIAL INFARCTION [None]
  - MUSCULAR WEAKNESS [None]
  - SPEECH DISORDER [None]
  - INSOMNIA [None]
  - MEMORY IMPAIRMENT [None]
  - VISION BLURRED [None]
  - ADVERSE EVENT [None]
